FAERS Safety Report 12960505 (Version 2)
Quarter: 2016Q4

REPORT INFORMATION
  Report Type: Spontaneous
  Country: JP (occurrence: JP)
  Receive Date: 20161121
  Receipt Date: 20161208
  Transmission Date: 20170207
  Serious: Yes (Other)
  Sender: FDA-Public Use
  Company Number: JP-SA-2016SA209255

PATIENT
  Age: 72 Year
  Sex: Female

DRUGS (1)
  1. RASURITEK [Suspect]
     Active Substance: RASBURICASE
     Route: 042

REACTIONS (4)
  - Pyelonephritis [Unknown]
  - Chills [Unknown]
  - Catheter placement [Unknown]
  - Pyrexia [Unknown]
